FAERS Safety Report 14344735 (Version 2)
Quarter: 2018Q1

REPORT INFORMATION
  Report Type: Report from Study
  Country: None (occurrence: DE)
  Receive Date: 20180103
  Receipt Date: 20180104
  Transmission Date: 20180509
  Serious: Yes (Hospitalization)
  Sender: FDA-Public Use
  Company Number: DE-ABBVIE-18K-062-2209042-00

PATIENT
  Age: 65 Year
  Sex: Female

DRUGS (3)
  1. DUODOPA [Suspect]
     Active Substance: CARBIDOPA\LEVODOPA
     Route: 050
     Dates: start: 20171221, end: 201801
  2. DUODOPA [Suspect]
     Active Substance: CARBIDOPA\LEVODOPA
     Indication: PARKINSON^S DISEASE
     Dosage: MD: 5.0ML; CRD: 1.6ML/H; CRN: 1.6ML/H; ED: 2.0ML
     Route: 050
     Dates: start: 20171207, end: 201712
  3. DUODOPA [Suspect]
     Active Substance: CARBIDOPA\LEVODOPA
     Dosage: MD: 5.0ML; CRD: 2.5ML/H; CRN: 2.5ML/H; ED: 2.0ML
     Route: 050
     Dates: start: 201801

REACTIONS (3)
  - General physical health deterioration [Recovered/Resolved]
  - Mobility decreased [Recovering/Resolving]
  - Posture abnormal [Recovered/Resolved]

NARRATIVE: CASE EVENT DATE: 201712
